FAERS Safety Report 6121367-2 (Version None)
Quarter: 2009Q1

REPORT INFORMATION
  Report Type: 
  Country: None (occurrence: None)
  Receive Date: 20090317
  Receipt Date: 20090306
  Transmission Date: 20090719
  Serious: Yes (Hospitalization, Disabling, Other)
  Sender: FDA-Public Use
  Company Number: US-MERCK-0811USA01213

PATIENT
  Age: 73 Year
  Sex: Female

DRUGS (4)
  1. FOSAMAX [Suspect]
     Indication: OSTEOPOROSIS PROPHYLAXIS
     Route: 048
     Dates: start: 20030804, end: 20070601
  2. FOSAMAX [Suspect]
     Route: 048
     Dates: start: 20030804, end: 20070601
  3. FOSAMAX PLUS D [Suspect]
     Indication: OSTEOPOROSIS PROPHYLAXIS
     Route: 048
     Dates: start: 20070508, end: 20070608
  4. FOSAMAX [Suspect]
     Route: 048
     Dates: start: 20050401, end: 20061201

REACTIONS (34)
  - ABDOMINAL PAIN LOWER [None]
  - ANXIETY [None]
  - ARTHRITIS [None]
  - ARTHRITIS INFECTIVE [None]
  - ARTHRODESIS [None]
  - BACK PAIN [None]
  - CARDIAC DISORDER [None]
  - CARDIAC FAILURE CONGESTIVE [None]
  - CELLULITIS [None]
  - CEREBROVASCULAR ACCIDENT [None]
  - CHEST DISCOMFORT [None]
  - DEPRESSION [None]
  - DEVICE RELATED INFECTION [None]
  - DIASTOLIC DYSFUNCTION [None]
  - EXTREMITY NECROSIS [None]
  - FLANK PAIN [None]
  - FOOT DEFORMITY [None]
  - GENERALISED OEDEMA [None]
  - HYPERLIPIDAEMIA [None]
  - INAPPROPRIATE SCHEDULE OF DRUG ADMINISTRATION [None]
  - JAUNDICE [None]
  - JAW DISORDER [None]
  - JOINT CONTRACTURE [None]
  - NEUROPATHY PERIPHERAL [None]
  - PAIN IN JAW [None]
  - PERONEAL NERVE PALSY [None]
  - PNEUMONIA [None]
  - PULMONARY HYPERTENSION [None]
  - RASH ERYTHEMATOUS [None]
  - RENAL FAILURE [None]
  - SKIN CANCER [None]
  - SKIN ULCER [None]
  - TOOTH DISORDER [None]
  - TOOTH EXTRACTION [None]
